FAERS Safety Report 13505427 (Version 5)
Quarter: 2017Q3

REPORT INFORMATION
  Report Type: Spontaneous
  Country: JP (occurrence: JP)
  Receive Date: 20170502
  Receipt Date: 20170904
  Transmission Date: 20171127
  Serious: Yes (Other)
  Sender: FDA-Public Use
  Company Number: PHJP2017JP014871

PATIENT
  Age: 72 Year
  Sex: Male
  Weight: 64 kg

DRUGS (13)
  1. ITRIZOLE [Suspect]
     Active Substance: ITRACONAZOLE
     Indication: ASPERGILLUS INFECTION
     Dosage: UNK
     Route: 048
  2. DOVONEX [Concomitant]
     Active Substance: CALCIPOTRIENE
     Indication: PSORIASIS
     Dosage: 10 G, ONCE TO TWICE A DAY
     Route: 062
     Dates: start: 20151112
  3. FOLIAMIN [Concomitant]
     Active Substance: FOLIC ACID
     Indication: PROPHYLAXIS
     Dosage: 0.025 G, QW
     Route: 048
     Dates: start: 20150106, end: 20150528
  4. DOVOBET [Concomitant]
     Active Substance: BETAMETHASONE\CALCIPOTRIENE
     Indication: PSORIASIS
     Dosage: 15 G, QD
     Route: 062
     Dates: start: 20160721
  5. UNISIA [Concomitant]
     Active Substance: AMLODIPINE BESYLATE\CANDESARTAN CILEXETIL
     Indication: HYPERTENSION
     Dosage: UNK
     Route: 048
     Dates: start: 20170210
  6. REBAMIPIDE [Concomitant]
     Active Substance: REBAMIPIDE
     Indication: PROPHYLAXIS
     Dosage: 100 MG, TID
     Route: 048
     Dates: start: 20170208
  7. COSENTYX [Suspect]
     Active Substance: SECUKINUMAB
     Indication: PSORIASIS
     Dosage: 300 MG, QW
     Route: 058
     Dates: start: 20150501, end: 20150529
  8. NEDORIL [Suspect]
     Active Substance: TERBINAFINE HYDROCHLORIDE
     Indication: ASPERGILLUS INFECTION
     Dosage: UNK
     Route: 048
  9. TIGASON [Concomitant]
     Active Substance: ETRETINATE
     Indication: PSORIASIS
     Dosage: 10 MG, QW2
     Route: 048
     Dates: start: 20170112
  10. METHOTREXATE. [Concomitant]
     Active Substance: METHOTREXATE
     Indication: PSORIASIS
     Dosage: 5 MG, QW
     Route: 048
     Dates: start: 20150106, end: 20150528
  11. COSENTYX [Suspect]
     Active Substance: SECUKINUMAB
     Dosage: 300 MG, QMO
     Route: 058
     Dates: start: 20150624
  12. PROPETO [Concomitant]
     Indication: PSORIASIS
     Dosage: ONCE TO TWICE A DAY
     Route: 062
     Dates: start: 20151126
  13. NERISONA [Concomitant]
     Active Substance: DIFLUCORTOLONE VALERATE
     Indication: PSORIASIS
     Dosage: 5 G, ONCE TO TIWCE A DAY
     Route: 062
     Dates: start: 20151126

REACTIONS (9)
  - Folliculitis [Unknown]
  - Pruritus [Recovered/Resolved]
  - Actinic keratosis [Not Recovered/Not Resolved]
  - Abdominal discomfort [Unknown]
  - Erythema [Unknown]
  - Pain [Unknown]
  - Aspergillus infection [Not Recovered/Not Resolved]
  - Skin erosion [Unknown]
  - Papule [Unknown]

NARRATIVE: CASE EVENT DATE: 20151112
